FAERS Safety Report 7927301-4 (Version None)
Quarter: 2011Q4

REPORT INFORMATION
  Report Type: 
  Country: None (occurrence: None)
  Receive Date: 20111118
  Receipt Date: 20111109
  Transmission Date: 20120403
  Serious: Yes (Hospitalization, Other)
  Sender: FDA-Public Use
  Company Number: PHEH2011US08272

PATIENT
  Sex: Male
  Weight: 94 kg

DRUGS (1)
  1. GLEEVEC [Suspect]
     Indication: GASTRIC CANCER
     Dosage: 600 MG, QD
     Route: 048

REACTIONS (3)
  - RENAL NEOPLASM [None]
  - PNEUMONIA [None]
  - KIDNEY INFECTION [None]
